FAERS Safety Report 6102656-4 (Version None)
Quarter: 2009Q1

REPORT INFORMATION
  Report Type: 
  Country: None (occurrence: None)
  Receive Date: 20090304
  Receipt Date: 20081118
  Transmission Date: 20090719
  Serious: No
  Sender: FDA-Public Use
  Company Number: A0757056A

PATIENT
  Sex: Male

DRUGS (1)
  1. REQUIP XL [Suspect]
     Indication: RESTLESS LEGS SYNDROME
     Dosage: 4MG SINGLE DOSE
     Route: 048
     Dates: start: 20081116

REACTIONS (2)
  - DRUG INEFFECTIVE [None]
  - INSOMNIA [None]
